FAERS Safety Report 6334604-6 (Version None)
Quarter: 2009Q3

REPORT INFORMATION
  Report Type: 
  Country: None (occurrence: None)
  Receive Date: 20090831
  Receipt Date: 20090821
  Transmission Date: 20100115
  Serious: Yes (Hospitalization)
  Sender: FDA-Public Use
  Company Number: CA-AMGEN-QUU361195

PATIENT
  Age: 34 Year
  Sex: Female

DRUGS (5)
  1. ENBREL [Suspect]
     Indication: DRUG USE FOR UNKNOWN INDICATION
     Route: 058
  2. HUMIRA [Suspect]
     Route: 058
  3. REMICADE [Suspect]
     Route: 042
  4. METHOTREXATE [Concomitant]
  5. RITUXAN [Concomitant]
     Route: 042

REACTIONS (5)
  - COLITIS ULCERATIVE [None]
  - COLONOSCOPY ABNORMAL [None]
  - DIARRHOEA HAEMORRHAGIC [None]
  - HAEMATOCRIT DECREASED [None]
  - HAEMORRHAGE [None]
